FAERS Safety Report 7440824-X (Version None)
Quarter: 2011Q2

REPORT INFORMATION
  Report Type: 
  Country: None (occurrence: None)
  Receive Date: 20110427
  Receipt Date: 20110422
  Transmission Date: 20111010
  Serious: Yes (Hospitalization, Disabling, Other)
  Sender: FDA-Public Use
  Company Number: US-ABBOTT-11P-163-0712514-00

PATIENT
  Sex: Female
  Weight: 44.946 kg

DRUGS (1)
  1. LUPRON DEPOT-PED [Suspect]
     Indication: PRECOCIOUS PUBERTY
     Route: 030
     Dates: start: 20100831, end: 20110301

REACTIONS (17)
  - PAIN IN EXTREMITY [None]
  - INFECTION [None]
  - BALANCE DISORDER [None]
  - LATENT TUBERCULOSIS [None]
  - ARTHRALGIA [None]
  - NEUROPATHY PERIPHERAL [None]
  - FALL [None]
  - DEMYELINATING POLYNEUROPATHY [None]
  - GAIT DISTURBANCE [None]
  - AREFLEXIA [None]
  - GUILLAIN-BARRE SYNDROME [None]
  - MUSCULAR WEAKNESS [None]
  - TUBERCULIN TEST POSITIVE [None]
  - MOBILITY DECREASED [None]
  - CSF PROTEIN INCREASED [None]
  - JOINT RANGE OF MOTION DECREASED [None]
  - CAUDA EQUINA SYNDROME [None]
